FAERS Safety Report 9171784 (Version 1)
Quarter: 2013Q1

REPORT INFORMATION
  Report Type: Spontaneous
  Country: TW (occurrence: None)
  Receive Date: 20130313
  Receipt Date: 20130313
  Transmission Date: 20140127
  Serious: Yes (Hospitalization)
  Sender: FDA-Public Use
  Company Number: NSR_01055_2013

PATIENT
  Age: 55 Year
  Sex: Male

DRUGS (3)
  1. BACLOFEN [Suspect]
     Indication: MUSCLE CONTRACTURE
     Dosage: 420 MG, NOT THE PRESCRIBED DOSE
  2. BACLOFEN [Suspect]
     Indication: MUSCLE SPASTICITY
     Dosage: 420 MG, NOT THE PRESCRIBED DOSE
  3. IRBESARTAN [Suspect]
     Dosage: 1050 MG, NOT THE PRESCRIBED DOSE

REACTIONS (12)
  - Toxicity to various agents [None]
  - Haemodialysis [None]
  - Overdose [None]
  - Coma [None]
  - Respiratory depression [None]
  - Blood pressure diastolic increased [None]
  - Heart rate decreased [None]
  - Body temperature decreased [None]
  - Hypotonia [None]
  - Hyporeflexia [None]
  - Leukocytosis [None]
  - Shift to the left [None]
